FAERS Safety Report 10950920 (Version 2)
Quarter: 2015Q2

REPORT INFORMATION
  Report Type: Spontaneous
  Country: FR (occurrence: FR)
  Receive Date: 20150324
  Receipt Date: 20150403
  Transmission Date: 20150821
  Serious: Yes (Life-Threatening, Hospitalization)
  Sender: FDA-Public Use
  Company Number: FR-ASTRAZENECA-2015SE27238

PATIENT
  Age: 16913 Day
  Sex: Male

DRUGS (1)
  1. MERONEM [Suspect]
     Active Substance: MEROPENEM
     Indication: INFECTION
     Route: 041
     Dates: start: 20150226, end: 20150304

REACTIONS (6)
  - Eosinophilia [Recovered/Resolved]
  - Bronchospasm [Recovered/Resolved with Sequelae]
  - Respiratory distress [Recovered/Resolved]
  - Burns second degree [Recovered/Resolved]
  - Dermatitis exfoliative [Recovered/Resolved with Sequelae]
  - Cardio-respiratory arrest [Recovered/Resolved]

NARRATIVE: CASE EVENT DATE: 20150227
